FAERS Safety Report 11288713 (Version 2)
Quarter: 2015Q3

REPORT INFORMATION
  Report Type: Report from Study
  Country: US (occurrence: US)
  Receive Date: 20150721
  Receipt Date: 20150917
  Transmission Date: 20151125
  Serious: Yes (Hospitalization, Other)
  Sender: FDA-Public Use
  Company Number: US-AMGEN-USASL2015071581

PATIENT
  Age: 72 Year
  Sex: Female

DRUGS (2)
  1. ENBREL [Suspect]
     Active Substance: ETANERCEPT
     Dosage: 50 MG, QWK
     Route: 065
  2. ENBREL [Suspect]
     Active Substance: ETANERCEPT
     Indication: RHEUMATOID ARTHRITIS
     Dosage: UNK UNK, QWK
     Route: 065

REACTIONS (11)
  - Diabetes mellitus [Unknown]
  - Rheumatoid arthritis [Unknown]
  - Volvulus [Recovering/Resolving]
  - Eye disorder [Unknown]
  - Pain [Recovering/Resolving]
  - Increased tendency to bruise [Unknown]
  - Hernia [Recovering/Resolving]
  - Fear [Unknown]
  - Drug dose omission [Unknown]
  - Loss of consciousness [Unknown]
  - Visual impairment [Unknown]

NARRATIVE: CASE EVENT DATE: 2014
